FAERS Safety Report 9383655 (Version 1)
Quarter: 2013Q3

REPORT INFORMATION
  Report Type: Spontaneous
  Country: US (occurrence: US)
  Receive Date: 20130704
  Receipt Date: 20130704
  Transmission Date: 20140515
  Serious: Yes (Other)
  Sender: FDA-Public Use
  Company Number: US-AMGEN-USASP2013046418

PATIENT
  Age: 78 Year
  Sex: Female

DRUGS (2)
  1. PROLIA [Suspect]
     Indication: OSTEOPOROSIS POSTMENOPAUSAL
     Dosage: UNK
  2. CALCIUM [Concomitant]

REACTIONS (5)
  - Sjogren^s syndrome [Unknown]
  - Vascular calcification [Unknown]
  - Burning sensation [Unknown]
  - Rash macular [Unknown]
  - Pruritus [Unknown]
